FAERS Safety Report 21300830 (Version 1)
Quarter: 2022Q3

REPORT INFORMATION
  Report Type: Other
  Country: CN (occurrence: None)
  Receive Date: 20220907
  Receipt Date: 20220907
  Transmission Date: 20221027
  Serious: Yes (Death)
  Sender: FDA-Public Use
  Company Number: CN-ROCHE-3174586

PATIENT
  Age: 9 Year
  Sex: Male

DRUGS (8)
  1. MYCOPHENOLATE MOFETIL [Suspect]
     Active Substance: MYCOPHENOLATE MOFETIL
     Indication: Prophylaxis against graft versus host disease
     Dosage: STARTED 8 DAYS BEFORE TRANSPLANTATION AND GRADUALLY STOPPED 30 DAYS AFTER TRANSPLANTATION IF THERE W
     Route: 065
  2. CYCLOSPORINE [Suspect]
     Active Substance: CYCLOSPORINE
     Indication: Prophylaxis against graft versus host disease
     Dosage: FROM - 8 DAYS OF PRETREATMENT
     Route: 042
  3. CYCLOSPORINE [Suspect]
     Active Substance: CYCLOSPORINE
     Dosage: CHANGED TO ORAL AFTER RECOVERY OF INTESTINAL FUNCTION
     Route: 048
  4. METHOTREXATE [Suspect]
     Active Substance: METHOTREXATE
     Indication: Prophylaxis against graft versus host disease
     Dosage: DAY 1 AFTER TRANSPLANTATION
     Route: 065
  5. METHOTREXATE [Suspect]
     Active Substance: METHOTREXATE
     Dosage: DAYS 3, 6, AND 11 AFTER TRANSPLANTATION
     Route: 065
  6. FLUDARABINE [Concomitant]
     Active Substance: FLUDARABINE PHOSPHATE
     Dosage: X 4 DAYS (- 8 DAYS TO - 5 DAYS)
  7. CYCLOPHOSPHAMIDE [Concomitant]
     Active Substance: CYCLOPHOSPHAMIDE
     Dosage: X 4 DAYS (- 5 DAYS TO - 2 DAYS)
  8. THYMOCYTE IMMUNE GLOBULIN NOS [Concomitant]
     Active Substance: THYMOCYTE IMMUNE GLOBULIN NOS
     Dosage: X 5 DAYS (- 5 DAYS TO - 1 DAY)

REACTIONS (1)
  - Infection [Fatal]
